FAERS Safety Report 4928776-5 (Version None)
Quarter: 2006Q1

REPORT INFORMATION
  Report Type: 
  Country: None (occurrence: None)
  Receive Date: 20060301
  Receipt Date: 20060223
  Transmission Date: 20060701
  Serious: Yes (Other)
  Sender: FDA-Public Use
  Company Number: US-JNJFOC-20060205784

PATIENT
  Age: 55 Year
  Sex: Male
  Weight: 92.99 kg

DRUGS (5)
  1. ULTRAM [Suspect]
     Route: 048
  2. LASIX [Concomitant]
     Indication: DIURETIC THERAPY
  3. TOPROL-XL [Concomitant]
     Indication: HYPERTENSION
  4. LIPITOR [Concomitant]
  5. ALDACTONE [Concomitant]
     Indication: HYPERTENSION

REACTIONS (4)
  - BLOOD IRON DECREASED [None]
  - BLOOD URIC ACID INCREASED [None]
  - OVERDOSE [None]
  - RENAL FAILURE [None]
